FAERS Safety Report 9936688 (Version 1)
Quarter: 2014Q1

REPORT INFORMATION
  Report Type: Spontaneous
  Country: US (occurrence: US)
  Receive Date: 20140228
  Receipt Date: 20140228
  Transmission Date: 20141002
  Serious: No
  Sender: FDA-Public Use
  Company Number: US-SA-2013SA133667

PATIENT
  Sex: Male

DRUGS (1)
  1. DIABETA [Suspect]
     Route: 065

REACTIONS (1)
  - Extrasystoles [Unknown]
